FAERS Safety Report 19658443 (Version 2)
Quarter: 2022Q1

REPORT INFORMATION
  Report Type: Report from Study
  Country: US (occurrence: US)
  Receive Date: 20210805
  Receipt Date: 20220119
  Transmission Date: 20220423
  Serious: Yes (Life-Threatening, Other)
  Sender: FDA-Public Use
  Company Number: US-AUROBINDO-AUR-APL-2021-033850

PATIENT
  Age: 41 Year
  Sex: Female
  Weight: 80.7 kg

DRUGS (4)
  1. BELINOSTAT [Suspect]
     Active Substance: BELINOSTAT
     Indication: Myelodysplastic syndrome
     Dosage: 7520 MILLIGRAM
     Route: 065
     Dates: start: 20200511
  2. BELINOSTAT [Suspect]
     Active Substance: BELINOSTAT
     Dosage: 7500 UNK
     Route: 065
     Dates: start: 20200601
  3. BELINOSTAT [Suspect]
     Active Substance: BELINOSTAT
     Dosage: 7500 MILLIGRAM
     Route: 065
     Dates: start: 20200622
  4. PEVONEDISTAT HYDROCHLORIDE [Suspect]
     Active Substance: PEVONEDISTAT HYDROCHLORIDE
     Indication: Product used for unknown indication
     Dosage: 141 MILLIGRAM

REACTIONS (6)
  - Platelet count decreased [Unknown]
  - Anaemia [Unknown]
  - Gingival pain [Unknown]
  - Epistaxis [Unknown]
  - Nausea [Unknown]
  - Cough [Unknown]

NARRATIVE: CASE EVENT DATE: 20200515
